FAERS Safety Report 4842037-4 (Version None)
Quarter: 2005Q4

REPORT INFORMATION
  Report Type: 
  Country: None (occurrence: None)
  Receive Date: 20051130
  Receipt Date: 20051122
  Transmission Date: 20060501
  Serious: Yes (Hospitalization)
  Sender: FDA-Public Use
  Company Number: JP-JNJFOC-20051100280

PATIENT
  Age: 76 Year
  Sex: Male

DRUGS (4)
  1. ITRIZOLE [Suspect]
     Indication: NAIL TINEA
     Route: 048
  2. TIAPRIDE HYDROCHLORIDE [Suspect]
     Indication: DRUG USE FOR UNKNOWN INDICATION
  3. NILVADIPINE [Concomitant]
     Route: 048
  4. ETHYL LOFLAZEPATE [Concomitant]
     Route: 048

REACTIONS (2)
  - BLOOD CREATINE PHOSPHOKINASE INCREASED [None]
  - DEPRESSED LEVEL OF CONSCIOUSNESS [None]
